FAERS Safety Report 5421844-3 (Version None)
Quarter: 2007Q3

REPORT INFORMATION
  Report Type: 
  Country: None (occurrence: None)
  Receive Date: 20070820
  Receipt Date: 20070727
  Transmission Date: 20080115
  Serious: Yes (Hospitalization)
  Sender: FDA-Public Use
  Company Number: 20070193

PATIENT
  Age: 67 Year
  Sex: Male

DRUGS (1)
  1. CALCIUM GLUCONATE INJ [Suspect]
     Indication: MALABSORPTION
     Dosage: 4 G X 1 INTRAVENOUS
     Route: 042
     Dates: start: 20070716

REACTIONS (5)
  - CHILLS [None]
  - HYPOTENSION [None]
  - POOR QUALITY DRUG ADMINISTERED [None]
  - PYREXIA [None]
  - THERAPEUTIC PRODUCT CONTAMINATION [None]
